FAERS Safety Report 6055190-4 (Version None)
Quarter: 2009Q1

REPORT INFORMATION
  Report Type: 
  Country: None (occurrence: None)
  Receive Date: 20090122
  Receipt Date: 20090114
  Transmission Date: 20090719
  Serious: Yes (Other)
  Sender: FDA-Public Use
  Company Number: CHPA2009US00663

PATIENT
  Age: 71 Year
  Sex: Male

DRUGS (2)
  1. DESENEX [Suspect]
     Indication: TINEA PEDIS
     Dosage: QD QW4, TOPICAL
     Route: 061
     Dates: start: 19700101
  2. INSULIN (INSULIN) [Concomitant]

REACTIONS (4)
  - CARDIAC PACEMAKER INSERTION [None]
  - HYPERTENSION [None]
  - INTENTIONAL DRUG MISUSE [None]
  - OSTEOPOROSIS [None]
